FAERS Safety Report 14407620 (Version 1)
Quarter: 2018Q1

REPORT INFORMATION
  Report Type: Spontaneous
  Country: US (occurrence: US)
  Receive Date: 20180116
  Receipt Date: 20180116
  Transmission Date: 20180509
  Serious: Yes (Life-Threatening, Hospitalization)
  Sender: FDA-Public Use
  Company Number: None

PATIENT
  Age: 79 Year
  Sex: Female
  Weight: 45.36 kg

DRUGS (4)
  1. CALCIUM 600 + D3 [Concomitant]
  2. METOCLOPRAMIDE 10MG [Suspect]
     Active Substance: METOCLOPRAMIDE
     Indication: NAUSEA
     Dosage: ?          QUANTITY:ID?~MMMWYYYY} :;?
     Route: 048
     Dates: start: 20171122, end: 20171122
  3. TYLENOL EXTRA STRENGTH [Concomitant]
     Active Substance: ACETAMINOPHEN
  4. EQUATE STOOL SOFTENER [Concomitant]
     Active Substance: CASANTHRANOL\DOCUSATE SODIUM

REACTIONS (4)
  - Headache [None]
  - Head injury [None]
  - Seizure [None]
  - Concussion [None]

NARRATIVE: CASE EVENT DATE: 20171122
